FAERS Safety Report 13902726 (Version 1)
Quarter: 2017Q3

REPORT INFORMATION
  Report Type: Spontaneous
  Country: US (occurrence: US)
  Receive Date: 20170824
  Receipt Date: 20170824
  Transmission Date: 20171127
  Serious: Yes (Other)
  Sender: FDA-Public Use
  Company Number: US-BAYER-2017-157155

PATIENT
  Age: 15 Year
  Sex: Male

DRUGS (1)
  1. KOGENATE FS [Suspect]
     Active Substance: ANTIHEMOPHILIC FACTOR, HUMAN RECOMBINANT
     Indication: FACTOR VIII DEFICIENCY
     Dosage: 4000 IU, TIW (PATIENT USES FACTOR PROPHYLACTIC ONLY WHILE PLAYING SOCCER)
     Route: 042
     Dates: start: 20150916

REACTIONS (5)
  - Haemorrhage [None]
  - Epistaxis [None]
  - Haemarthrosis [None]
  - Head injury [None]
  - Ligament sprain [None]
